FAERS Safety Report 8989865 (Version 1)
Quarter: 2012Q4

REPORT INFORMATION
  Report Type: 
  Country: US (occurrence: US)
  Receive Date: 20121228
  Receipt Date: 20121228
  Transmission Date: 20130627
  Serious: Yes (Death)
  Sender: FDA-Public Use
  Company Number: US-GLAXOSMITHKLINE-A1006514A

PATIENT
  Age: 40 Year
  Sex: Female

DRUGS (4)
  1. TYKERB [Suspect]
     Indication: PRODUCT USED FOR UNKNOWN INDICATION
     Dosage: 1250MG See dosage text
     Route: 048
  2. XELODA [Concomitant]
  3. EFFEXOR [Concomitant]
  4. PERCOCET [Concomitant]

REACTIONS (1)
  - Death [Fatal]
